FAERS Safety Report 11769070 (Version 1)
Quarter: 2015Q4

REPORT INFORMATION
  Report Type: Spontaneous
  Country: US (occurrence: None)
  Receive Date: 20151123
  Receipt Date: 20151123
  Transmission Date: 20160304
  Serious: No
  Sender: FDA-Public Use
  Company Number: US-MDT-ADR-2015-02210

PATIENT
  Age: 62 Year
  Sex: Female

DRUGS (2)
  1. MORPHINE INTRATHECAL (7.5 MG/ML) [Suspect]
     Active Substance: MORPHINE
     Dosage: 2.5015 MG/DAY
  2. BACLOFEN INTRATHECAL (270 MCG/ML) [Suspect]
     Active Substance: BACLOFEN
     Indication: PAIN
     Dosage: 90.05 MCG

REACTIONS (2)
  - No therapeutic response [None]
  - Pain [None]
